FAERS Safety Report 6842144-0 (Version None)
Quarter: 2010Q3

REPORT INFORMATION
  Report Type: 
  Country: None (occurrence: None)
  Receive Date: 20100714
  Receipt Date: 20070818
  Transmission Date: 20110219
  Serious: No
  Sender: FDA-Public Use
  Company Number: US-PFIZER INC-2007060642

PATIENT
  Sex: Male

DRUGS (7)
  1. CHANTIX [Suspect]
     Indication: SMOKING CESSATION THERAPY
     Dates: start: 20070624
  2. TRICOR [Concomitant]
  3. CRESTOR [Concomitant]
  4. GLYCERYL TRINITRATE [Concomitant]
  5. LOPRESSOR [Concomitant]
  6. ACETYLSALICYLIC ACID [Concomitant]
  7. EFFEXOR [Concomitant]

REACTIONS (1)
  - DRUG SCREEN FALSE POSITIVE [None]
